FAERS Safety Report 16831688 (Version 1)
Quarter: 2019Q3

REPORT INFORMATION
  Report Type: Spontaneous
  Country: IT (occurrence: IT)
  Receive Date: 20190920
  Receipt Date: 20190920
  Transmission Date: 20191005
  Serious: Yes (Other)
  Sender: FDA-Public Use
  Company Number: IT-009507513-1909ITA006539

PATIENT
  Age: 77 Year
  Sex: Female

DRUGS (1)
  1. CUBICIN [Suspect]
     Active Substance: DAPTOMYCIN
     Indication: PNEUMONIA KLEBSIELLA
     Dosage: FORMULATION POWDER FOR SOLUTION FOR INJECTION OR INFUSION, 500 MILLIGRAM QD
     Route: 042

REACTIONS (3)
  - Renal failure [Unknown]
  - Pruritus [Unknown]
  - Drug ineffective [Unknown]
